FAERS Safety Report 8392778-X (Version None)
Quarter: 2012Q2

REPORT INFORMATION
  Report Type: 
  Country: None (occurrence: None)
  Receive Date: 20120529
  Receipt Date: 20120522
  Transmission Date: 20120825
  Serious: Yes (Hospitalization)
  Sender: FDA-Public Use
  Company Number: US-TEVA-339623USA

PATIENT

DRUGS (4)
  1. LEUCOVORIN CALCIUM [Suspect]
     Indication: NEOPLASM
  2. ABT-888 (VELIPARIB) [Suspect]
     Indication: NEOPLASM
  3. FLUOROURACIL [Suspect]
     Indication: NEOPLASM
  4. IRINOTECAN HCL [Suspect]
     Indication: NEOPLASM

REACTIONS (1)
  - CLOSTRIDIUM DIFFICILE COLITIS [None]
